FAERS Safety Report 6750297-8 (Version None)
Quarter: 2010Q2

REPORT INFORMATION
  Report Type: 
  Country: None (occurrence: None)
  Receive Date: 20100601
  Receipt Date: 20100521
  Transmission Date: 20101027
  Serious: Yes (Other)
  Sender: FDA-Public Use
  Company Number: JP-PFIZER INC-2010065386

PATIENT

DRUGS (1)
  1. HALCION [Suspect]
     Dosage: 60 DF, UNK
     Route: 048

REACTIONS (2)
  - OVERDOSE [None]
  - POISONING [None]
